FAERS Safety Report 4371778-0 (Version None)
Quarter: 2004Q2

REPORT INFORMATION
  Report Type: 
  Country: None (occurrence: None)
  Receive Date: 20040604
  Receipt Date: 20040604
  Transmission Date: 20050107
  Serious: Yes (Hospitalization)
  Sender: FDA-Public Use
  Company Number: None

PATIENT
  Age: 59 Year
  Sex: Female
  Weight: 48.3 kg

DRUGS (5)
  1. VANCOMYCIN [Suspect]
     Indication: ENDOCARDITIS STAPHYLOCOCCAL
     Dosage: 500-1000 MG DAILY IV
     Route: 042
     Dates: start: 20040409, end: 20040525
  2. RIFAMPIN [Suspect]
     Indication: ENDOCARDITIS STAPHYLOCOCCAL
     Dosage: 300 MG BID ORAL
     Route: 048
     Dates: start: 20040503, end: 20040525
  3. RANITIDINE [Concomitant]
  4. HEPARIN [Concomitant]
  5. HEPARIN [Concomitant]

REACTIONS (8)
  - ASTHENIA [None]
  - CHEST PAIN [None]
  - FATIGUE [None]
  - ORTHOPNOEA [None]
  - PLATELET COUNT DECREASED [None]
  - TACHYCARDIA [None]
  - TACHYPNOEA [None]
  - WHITE BLOOD CELL COUNT DECREASED [None]
